FAERS Safety Report 15302918 (Version 4)
Quarter: 2018Q4

REPORT INFORMATION
  Report Type: Spontaneous
  Country: DE (occurrence: DE)
  Receive Date: 20180821
  Receipt Date: 20181012
  Transmission Date: 20190204
  Serious: Yes (Other)
  Sender: FDA-Public Use
  Company Number: DE-MYLANLABS-2018M1062646

PATIENT
  Sex: Male

DRUGS (11)
  1. L-THYROXIN 1A PHARMA [Concomitant]
     Indication: THYROID DISORDER
     Dosage: 0.125 MG, QD (0.5X/DAY IN MORNING)
  2. TORASEMID-1A PHARMA [Concomitant]
     Active Substance: TORSEMIDE
     Indication: FLUID RETENTION
     Dosage: 10 MG, UNK
  3. NOVOPULMON 400 NOVOLIZER, PULVER ZUR INHALATION [Suspect]
     Active Substance: BUDESONIDE
     Indication: PRODUCT USED FOR UNKNOWN INDICATION
     Dosage: UNK
     Route: 055
  4. LODOTRA [Concomitant]
     Active Substance: PREDNISONE
     Indication: RHEUMATIC DISORDER
     Dosage: 5 MG, QD (AT NIGHT)
  5. EUTHYROX [Concomitant]
     Active Substance: LEVOTHYROXINE SODIUM
     Indication: THYROID DISORDER
     Dosage: 0.1 MG, QD (0.5X/DAY IN THE MORNING)
  6. PANTOPRAZOL ? CT [Concomitant]
     Indication: ABDOMINAL DISCOMFORT
     Dosage: 40 MG, UNK
  7. QUENSYL [Concomitant]
     Active Substance: HYDROXYCHLOROQUINE
     Indication: DERMATOMYOSITIS
     Dosage: 200 MG, BID (1 IN MORNING AND 1 IN EVENING)
  8. IRBESARTAN. [Concomitant]
     Active Substance: IRBESARTAN
     Indication: BLOOD PRESSURE MEASUREMENT
     Dosage: 300 MG, QD (IN THE MORNING)
  9. NOVOPULMON [Concomitant]
     Active Substance: BUDESONIDE
     Indication: LUNG DISORDER
     Dosage: 0.4 MG, BID (1 IN MORNING AND 1 IN EVENING)
     Route: 055
  10. PRADAXA [Concomitant]
     Active Substance: DABIGATRAN ETEXILATE MESYLATE
     Indication: ANTICOAGULANT THERAPY
     Dosage: 150 MG, BID (1 IN MORNING AND 1 IN EVENING)
  11. AMINEURIN [Concomitant]
     Active Substance: AMITRIPTYLINE HYDROCHLORIDE
     Indication: BLOOD PRESSURE MEASUREMENT
     Dosage: 100 MG, QD (0.5X/DAY AT NIGHT)

REACTIONS (1)
  - Haemoptysis [Recovered/Resolved]
